FAERS Safety Report 19063296 (Version 1)
Quarter: 2021Q1

REPORT INFORMATION
  Report Type: Spontaneous
  Country: US (occurrence: US)
  Receive Date: 20210326
  Receipt Date: 20210326
  Transmission Date: 20210420
  Serious: Yes (Disabling)
  Sender: FDA-Public Use
  Company Number: None

PATIENT
  Age: 35 Year
  Sex: Female
  Weight: 58.5 kg

DRUGS (7)
  1. VITAMIN D [Concomitant]
     Active Substance: VITAMIN D NOS
  2. CIPROFLOXACIN. [Suspect]
     Active Substance: CIPROFLOXACIN
     Indication: EAR INFECTION
     Dosage: ?          QUANTITY:14 TABLET(S);?
     Route: 048
  3. MAGNESIUM [Concomitant]
     Active Substance: MAGNESIUM
  4. PREBIOTIC [Concomitant]
  5. PROBIOTIC [Concomitant]
     Active Substance: PROBIOTICS NOS
  6. VITAMIN B12 [Concomitant]
     Active Substance: CYANOCOBALAMIN
  7. FISH OIL [Concomitant]
     Active Substance: FISH OIL

REACTIONS (17)
  - Hypoaesthesia [None]
  - Depression [None]
  - Dizziness [None]
  - Tremor [None]
  - Fatigue [None]
  - Anxiety [None]
  - Abdominal pain upper [None]
  - Pruritus [None]
  - Eye pain [None]
  - Cerebral disorder [None]
  - Arthralgia [None]
  - Back pain [None]
  - Asthenia [None]
  - Pain in extremity [None]
  - Facial pain [None]
  - Palpitations [None]
  - Photopsia [None]

NARRATIVE: CASE EVENT DATE: 20191220
